FAERS Safety Report 6107710-9 (Version None)
Quarter: 2009Q1

REPORT INFORMATION
  Report Type: 
  Country: None (occurrence: None)
  Receive Date: 20090309
  Receipt Date: 20090303
  Transmission Date: 20090719
  Serious: Yes (Hospitalization, Disabling)
  Sender: FDA-Public Use
  Company Number: A0729294A

PATIENT
  Age: 52 Year
  Sex: Male

DRUGS (8)
  1. AVANDIA [Suspect]
     Indication: TYPE 2 DIABETES MELLITUS
     Dosage: 8MG IN THE MORNING
     Route: 048
     Dates: start: 20010701, end: 20061101
  2. AVANDARYL [Suspect]
     Indication: TYPE 2 DIABETES MELLITUS
     Route: 048
     Dates: start: 20061101
  3. GLUCOPHAGE [Concomitant]
  4. INSULIN [Concomitant]
  5. AMARYL [Concomitant]
  6. GLUCOTROL [Concomitant]
  7. CELEBREX [Concomitant]
  8. LOPRESSOR [Concomitant]

REACTIONS (6)
  - AORTIC ARTERIOSCLEROSIS [None]
  - ARRHYTHMIA [None]
  - CARDIAC ARREST [None]
  - CARDIAC FAILURE CONGESTIVE [None]
  - MYOCARDIAL INFARCTION [None]
  - VENTRICULAR FIBRILLATION [None]
